FAERS Safety Report 12902453 (Version 1)
Quarter: 2016Q4

REPORT INFORMATION
  Report Type: Spontaneous
  Country: US (occurrence: US)
  Receive Date: 20161031
  Receipt Date: 20161031
  Transmission Date: 20170207
  Serious: No
  Sender: FDA-Public Use
  Company Number: None

PATIENT
  Age: 23 Year
  Sex: Male
  Weight: 59.4 kg

DRUGS (2)
  1. DULOXETINE. [Suspect]
     Active Substance: DULOXETINE
     Indication: GENERALISED ANXIETY DISORDER
     Dosage: ?          QUANTITY:30 CAPSULE(S);?
     Route: 048
     Dates: start: 20160815, end: 20160822
  2. GNC ENERGY MULTIVITAMIN [Concomitant]

REACTIONS (4)
  - Withdrawal syndrome [None]
  - Drug monitoring procedure not performed [None]
  - Unevaluable event [None]
  - Anxiety [None]

NARRATIVE: CASE EVENT DATE: 20161024
